FAERS Safety Report 9923762 (Version 2)
Quarter: 2015Q1

REPORT INFORMATION
  Report Type: Spontaneous
  Country: US (occurrence: US)
  Receive Date: 20140225
  Receipt Date: 20150227
  Transmission Date: 20150721
  Serious: No
  Sender: FDA-Public Use
  Company Number: US-AMGEN-USASP2014002903

PATIENT
  Age: 57 Year
  Sex: Female

DRUGS (1)
  1. ENBREL [Suspect]
     Active Substance: ETANERCEPT
     Indication: RHEUMATOID ARTHRITIS
     Dosage: 50 MG, QWK
     Route: 058
     Dates: start: 201301

REACTIONS (13)
  - Malaise [Unknown]
  - Respiratory disorder [Unknown]
  - Arthralgia [Unknown]
  - Asthenia [Unknown]
  - Fall [Unknown]
  - Feeling hot [Unknown]
  - Rheumatoid arthritis [Unknown]
  - Hyperhidrosis [Unknown]
  - Immune system disorder [Unknown]
  - Pain [Unknown]
  - Drug ineffective [Unknown]
  - Joint swelling [Unknown]
  - Influenza [Unknown]

NARRATIVE: CASE EVENT DATE: 20140403
